FAERS Safety Report 17058202 (Version 1)
Quarter: 2019Q4

REPORT INFORMATION
  Report Type: Spontaneous
  Country: US (occurrence: US)
  Receive Date: 20191023
  Receipt Date: 20191023
  Transmission Date: 20200122
  Serious: No
  Sender: FDA-Public Use
  Company Number: None

PATIENT
  Age: 21 Year
  Sex: Female

DRUGS (1)
  1. AIMOVIG [Suspect]
     Active Substance: ERENUMAB-AOOE
     Indication: HEADACHE
     Route: 058
     Dates: start: 20190922

REACTIONS (3)
  - Headache [None]
  - Therapy cessation [None]
  - Constipation [None]

NARRATIVE: CASE EVENT DATE: 20190924
